FAERS Safety Report 5890381-4 (Version None)
Quarter: 2008Q3

REPORT INFORMATION
  Report Type: 
  Country: None (occurrence: None)
  Receive Date: 20080918
  Receipt Date: 20080904
  Transmission Date: 20090109
  Serious: Yes (Hospitalization)
  Sender: FDA-Public Use
  Company Number: 237215J08USA

PATIENT
  Age: 45 Year
  Sex: Female
  Weight: 97.5234 kg

DRUGS (6)
  1. REBIF [Suspect]
     Indication: MULTIPLE SCLEROSIS
     Dosage: 44 MCG, 3 IN 1 WEEKS, SUBCUTANEOUS; NOT REPORTED, NOT REPORTED, NOT REPORTED
     Route: 058
     Dates: start: 20080103, end: 20080101
  2. REBIF [Suspect]
     Indication: MULTIPLE SCLEROSIS
     Dosage: 44 MCG, 3 IN 1 WEEKS, SUBCUTANEOUS; NOT REPORTED, NOT REPORTED, NOT REPORTED
     Route: 058
     Dates: start: 20080815
  3. BACLOFEN [Concomitant]
  4. ALEVE (CAPLET) [Concomitant]
  5. OSCAL (CALCIUM CARBONATE) [Concomitant]
  6. ONE A DAY WOMENA (ONE A DAY /00156401) [Concomitant]

REACTIONS (1)
  - GRAND MAL CONVULSION [None]
